FAERS Safety Report 16551144 (Version 1)
Quarter: 2019Q3

REPORT INFORMATION
  Report Type: Spontaneous
  Country: US (occurrence: US)
  Receive Date: 20190709
  Receipt Date: 20190709
  Transmission Date: 20191004
  Serious: No
  Sender: FDA-Public Use
  Company Number: None

PATIENT
  Age: 14 Year
  Sex: Male

DRUGS (1)
  1. SYMBICORT [Suspect]
     Active Substance: BUDESONIDE\FORMOTEROL FUMARATE DIHYDRATE
     Route: 055
     Dates: start: 20190614, end: 20190709

REACTIONS (4)
  - Paradoxical drug reaction [None]
  - Condition aggravated [None]
  - Drug ineffective [None]
  - Device malfunction [None]

NARRATIVE: CASE EVENT DATE: 20190709
